FAERS Safety Report 16846825 (Version 1)
Quarter: 2019Q3

REPORT INFORMATION
  Report Type: Report from Study
  Country: IT (occurrence: IT)
  Receive Date: 20190924
  Receipt Date: 20190924
  Transmission Date: 20191005
  Serious: Yes (Other)
  Sender: FDA-Public Use
  Company Number: IT-JNJFOC-20190911521

PATIENT
  Sex: Male

DRUGS (9)
  1. APALUTAMIDE [Suspect]
     Active Substance: APALUTAMIDE
     Indication: HORMONE-REFRACTORY PROSTATE CANCER
     Route: 048
     Dates: start: 20190128, end: 20190816
  2. ADALAT [Concomitant]
     Active Substance: NIFEDIPINE
  3. FOLIC ACID. [Concomitant]
     Active Substance: FOLIC ACID
  4. POTASSIUM [Concomitant]
     Active Substance: POTASSIUM
  5. TENORMIN [Concomitant]
     Active Substance: ATENOLOL
  6. COUMADIN [Concomitant]
     Active Substance: WARFARIN SODIUM
  7. LANOXIN [Concomitant]
     Active Substance: DIGOXIN
  8. DECAPEPTYL                         /00486501/ [Concomitant]
     Active Substance: GONADORELIN
  9. ANTRA                              /00661201/ [Concomitant]
     Active Substance: OMEPRAZOLE

REACTIONS (3)
  - Confusional state [Recovered/Resolved]
  - Hallucination, visual [Recovered/Resolved]
  - Delirium [Recovered/Resolved]

NARRATIVE: CASE EVENT DATE: 20190815
